FAERS Safety Report 4301029-4 (Version None)
Quarter: 2004Q1

REPORT INFORMATION
  Report Type: 
  Country: None (occurrence: None)
  Receive Date: 20040219
  Receipt Date: 20040211
  Transmission Date: 20041129
  Serious: No
  Sender: FDA-Public Use
  Company Number: 2004PK00330

PATIENT
  Age: 76 Year
  Sex: Female

DRUGS (5)
  1. SEROQUEL [Suspect]
     Indication: DEPRESSION
     Dosage: UP TO 400 MG
     Dates: start: 20031127, end: 20040112
  2. SEROQUEL [Suspect]
     Indication: PSYCHOTIC DISORDER
     Dosage: UP TO 400 MG
     Dates: start: 20031127, end: 20040112
  3. QUILONORM [Concomitant]
  4. SAROTEN RETARD [Concomitant]
  5. LORAZEPAM [Concomitant]

REACTIONS (1)
  - HEPATITIS [None]
